FAERS Safety Report 15009597 (Version 6)
Quarter: 2019Q4

REPORT INFORMATION
  Report Type: Report from Study
  Country: DE (occurrence: DE)
  Receive Date: 20180614
  Receipt Date: 20191207
  Transmission Date: 20200122
  Serious: Yes (Hospitalization)
  Sender: FDA-Public Use
  Company Number: DE-TEVA-2018-DE-907316

PATIENT
  Age: 77 Year
  Sex: Female
  Weight: 61 kg

DRUGS (40)
  1. CYCLOPHOSPHAMIDE. [Suspect]
     Active Substance: CYCLOPHOSPHAMIDE
     Indication: PRODUCT USED FOR UNKNOWN INDICATION
     Dosage: DOSAGE FORM: UNSPECIFIED
     Route: 041
     Dates: start: 20180320
  2. CYCLOPHOSPHAMIDE. [Suspect]
     Active Substance: CYCLOPHOSPHAMIDE
     Route: 041
     Dates: start: 20180824
  3. RIXIMYO [Suspect]
     Active Substance: RITUXIMAB
     Route: 041
     Dates: start: 20180508
  4. RIXIMYO [Suspect]
     Active Substance: RITUXIMAB
     Route: 041
     Dates: start: 20180606
  5. VINCRISTINE [Suspect]
     Active Substance: VINCRISTINE
     Route: 041
     Dates: start: 20180703
  6. VINCRISTINE [Suspect]
     Active Substance: VINCRISTINE
     Route: 041
     Dates: start: 20180410
  7. DOXORUBICIN [Suspect]
     Active Substance: DOXORUBICIN
     Route: 041
     Dates: start: 20180904
  8. PREDNISONE. [Suspect]
     Active Substance: PREDNISONE
     Route: 048
     Dates: start: 20180724
  9. CYCLOPHOSPHAMIDE. [Suspect]
     Active Substance: CYCLOPHOSPHAMIDE
     Route: 041
     Dates: start: 20180703
  10. RIXIMYO [Suspect]
     Active Substance: RITUXIMAB
     Indication: DIFFUSE LARGE B-CELL LYMPHOMA
     Route: 041
     Dates: start: 20180319
  11. VINCRISTINE [Suspect]
     Active Substance: VINCRISTINE
     Indication: PRODUCT USED FOR UNKNOWN INDICATION
     Dosage: DOSAGE FORM: UNSPECIFIED
     Route: 041
     Dates: start: 20180320
  12. VINCRISTINE [Suspect]
     Active Substance: VINCRISTINE
     Route: 041
     Dates: start: 20180724
  13. DOXORUBICIN [Suspect]
     Active Substance: DOXORUBICIN
     Route: 041
     Dates: start: 20180703
  14. PREDNISONE. [Suspect]
     Active Substance: PREDNISONE
     Route: 048
     Dates: start: 20180814
  15. PREDNISONE. [Suspect]
     Active Substance: PREDNISONE
     Route: 048
     Dates: start: 20180904
  16. PREDNISONE. [Suspect]
     Active Substance: PREDNISONE
     Route: 048
     Dates: start: 20180607
  17. CYCLOPHOSPHAMIDE. [Suspect]
     Active Substance: CYCLOPHOSPHAMIDE
     Route: 041
     Dates: start: 20180904
  18. CYCLOPHOSPHAMIDE. [Suspect]
     Active Substance: CYCLOPHOSPHAMIDE
     Route: 041
     Dates: start: 20180607
  19. VINCRISTINE [Suspect]
     Active Substance: VINCRISTINE
     Route: 041
     Dates: start: 20180814
  20. VINCRISTINE [Suspect]
     Active Substance: VINCRISTINE
     Route: 041
     Dates: start: 20180607
  21. PREDNISONE. [Suspect]
     Active Substance: PREDNISONE
     Route: 048
     Dates: start: 20180410
  22. CYCLOPHOSPHAMIDE. [Suspect]
     Active Substance: CYCLOPHOSPHAMIDE
     Route: 041
     Dates: start: 20180814
  23. RIXIMYO [Suspect]
     Active Substance: RITUXIMAB
     Route: 041
     Dates: start: 20180723
  24. RIXIMYO [Suspect]
     Active Substance: RITUXIMAB
     Route: 041
     Dates: start: 20180813
  25. DOXORUBICIN [Suspect]
     Active Substance: DOXORUBICIN
     Route: 041
     Dates: start: 20180724
  26. PREDNISONE. [Suspect]
     Active Substance: PREDNISONE
     Indication: PRODUCT USED FOR UNKNOWN INDICATION
     Dosage: DOSAGE FORM: UNSPECIFIED
     Route: 048
     Dates: start: 20180320
  27. CYCLOPHOSPHAMIDE. [Suspect]
     Active Substance: CYCLOPHOSPHAMIDE
     Route: 041
     Dates: start: 20180509
  28. CYCLOPHOSPHAMIDE. [Suspect]
     Active Substance: CYCLOPHOSPHAMIDE
     Route: 041
     Dates: start: 20180410
  29. VINCRISTINE [Suspect]
     Active Substance: VINCRISTINE
     Route: 041
     Dates: start: 20180904
  30. DOXORUBICIN [Suspect]
     Active Substance: DOXORUBICIN
     Route: 041
     Dates: start: 20180509
  31. PREDNISONE. [Suspect]
     Active Substance: PREDNISONE
     Route: 048
     Dates: start: 20180509
  32. RIXIMYO [Suspect]
     Active Substance: RITUXIMAB
     Route: 041
     Dates: start: 20180702
  33. DOXORUBICIN [Suspect]
     Active Substance: DOXORUBICIN
     Indication: PRODUCT USED FOR UNKNOWN INDICATION
     Route: 041
     Dates: start: 20180320
  34. DOXORUBICIN [Suspect]
     Active Substance: DOXORUBICIN
     Route: 041
     Dates: start: 20180607
  35. DOXORUBICIN [Suspect]
     Active Substance: DOXORUBICIN
     Route: 041
     Dates: start: 20180814
  36. PREDNISONE. [Suspect]
     Active Substance: PREDNISONE
     Route: 048
     Dates: start: 20180703
  37. RIXIMYO [Suspect]
     Active Substance: RITUXIMAB
     Route: 041
     Dates: start: 20180409
  38. RIXIMYO [Suspect]
     Active Substance: RITUXIMAB
     Route: 041
     Dates: start: 20180903
  39. VINCRISTINE [Suspect]
     Active Substance: VINCRISTINE
     Route: 041
     Dates: start: 20180509
  40. DOXORUBICIN [Suspect]
     Active Substance: DOXORUBICIN
     Route: 041
     Dates: start: 20180410

REACTIONS (4)
  - Pyrexia [Unknown]
  - Fatigue [Recovered/Resolved]
  - Pancytopenia [Recovered/Resolved]
  - Anaemia [Recovered/Resolved]

NARRATIVE: CASE EVENT DATE: 20180328
